FAERS Safety Report 13735491 (Version 1)
Quarter: 2017Q3

REPORT INFORMATION
  Report Type: Spontaneous
  Country: US (occurrence: US)
  Receive Date: 20170710
  Receipt Date: 20170710
  Transmission Date: 20171127
  Serious: No
  Sender: FDA-Public Use
  Company Number: US-PFIZER INC-2017296338

PATIENT
  Age: 60 Year
  Sex: Female

DRUGS (1)
  1. METHOTREXATE SODIUM. [Suspect]
     Active Substance: METHOTREXATE SODIUM
     Dosage: 25 MG, WEEKLY [2.5MG TAB (10 TABS PO EVERY WEEK)]
     Route: 048

REACTIONS (8)
  - Oedema [Unknown]
  - Insomnia [Unknown]
  - Mouth ulceration [Unknown]
  - Drug ineffective [Unknown]
  - Depression [Unknown]
  - Dry mouth [Unknown]
  - Nodule [Unknown]
  - Dysphagia [Unknown]
